FAERS Safety Report 7289290-8 (Version None)
Quarter: 2011Q1

REPORT INFORMATION
  Report Type: 
  Country: None (occurrence: None)
  Receive Date: 20110211
  Receipt Date: 20110207
  Transmission Date: 20110831
  Serious: Yes (Death)
  Sender: FDA-Public Use
  Company Number: TN-SANOFI-AVENTIS-2011SA008196

PATIENT
  Age: 84 Year
  Sex: Male

DRUGS (10)
  1. PLAVIX [Suspect]
     Indication: MYOCARDIAL INFARCTION
     Route: 048
     Dates: start: 20100302, end: 20110102
  2. PERINDOPRIL ERBUMINE [Concomitant]
     Route: 048
     Dates: end: 20110102
  3. PLAVIX [Suspect]
     Route: 048
     Dates: start: 20100302, end: 20110102
  4. ATORVASTATIN [Concomitant]
     Route: 048
     Dates: end: 20110102
  5. ASPEGIC 325 [Concomitant]
     Route: 048
     Dates: end: 20110102
  6. AMLODIPINE [Concomitant]
     Route: 048
     Dates: end: 20110102
  7. FUMAFER [Concomitant]
     Route: 048
     Dates: end: 20110102
  8. CORVASAL [Concomitant]
     Route: 048
     Dates: end: 20110102
  9. GLUCOR [Concomitant]
     Route: 048
     Dates: end: 20110102
  10. FAMODINE [Concomitant]
     Route: 048
     Dates: end: 20110102

REACTIONS (2)
  - DEATH [None]
  - DYSPNOEA [None]
